FAERS Safety Report 5646596-3 (Version None)
Quarter: 2008Q1

REPORT INFORMATION
  Report Type: 
  Country: None (occurrence: None)
  Receive Date: 20080303
  Receipt Date: 20080225
  Transmission Date: 20080703
  Serious: Yes (Other)
  Sender: FDA-Public Use
  Company Number: PHEH2008US00883

PATIENT
  Age: 89 Year
  Sex: Female

DRUGS (3)
  1. ARICEPT [Suspect]
  2. EXFORGE [Suspect]
     Indication: HYPERTENSION
     Dosage: 10/160 MG QD
     Route: 048
     Dates: start: 20071001, end: 20071115
  3. EXFORGE [Suspect]
     Dosage: 5/160 MG QD
     Route: 048
     Dates: start: 20071116

REACTIONS (3)
  - DRUG INTERACTION [None]
  - HALLUCINATION [None]
  - HALLUCINATION, AUDITORY [None]
